FAERS Safety Report 5362425-X (Version None)
Quarter: 2007Q2

REPORT INFORMATION
  Report Type: 
  Country: None (occurrence: None)
  Receive Date: 20070619
  Receipt Date: 20070611
  Transmission Date: 20071010
  Serious: Yes (Other)
  Sender: FDA-Public Use
  Company Number: US-ASTRAZENECA-2007UW14140

PATIENT
  Age: 66 Year
  Sex: Female
  Weight: 77.1 kg

DRUGS (5)
  1. ARIMIDEX [Suspect]
     Indication: BREAST CANCER
     Route: 048
     Dates: start: 20050101
  2. ARIMIDEX [Suspect]
     Route: 048
  3. ZOMETA [Suspect]
     Route: 042
  4. CLARITIN [Concomitant]
  5. FOSAMAX [Concomitant]

REACTIONS (6)
  - ARTHROPATHY [None]
  - COUGH [None]
  - INCREASED UPPER AIRWAY SECRETION [None]
  - INTERVERTEBRAL DISC PROTRUSION [None]
  - PANCREATIC NEOPLASM [None]
  - THROAT IRRITATION [None]
